FAERS Safety Report 17425037 (Version 2)
Quarter: 2020Q2

REPORT INFORMATION
  Report Type: Report from Study
  Country: None (occurrence: US)
  Receive Date: 20200217
  Receipt Date: 20200630
  Transmission Date: 20200713
  Serious: Yes (Other)
  Sender: FDA-Public Use
  Company Number: US-ABBVIE-19K-163-3158103-00

PATIENT
  Age: 85 Year
  Sex: Female

DRUGS (4)
  1. IMBRUVICA [Suspect]
     Active Substance: IBRUTINIB
     Indication: WALDENSTROM^S MACROGLOBULINAEMIA
     Dosage: 70 MG, QD
     Route: 048
     Dates: start: 20190809
  2. IMBRUVICA [Suspect]
     Active Substance: IBRUTINIB
     Route: 048
  3. IMBRUVICA [Suspect]
     Active Substance: IBRUTINIB
     Dosage: 70 MG, TID
     Route: 048
     Dates: start: 20190812
  4. IMBRUVICA [Suspect]
     Active Substance: IBRUTINIB
     Route: 048
     Dates: start: 20190809

REACTIONS (16)
  - Diarrhoea [Not Recovered/Not Resolved]
  - Head discomfort [Unknown]
  - Joint swelling [Not Recovered/Not Resolved]
  - Emotional disorder [Not Recovered/Not Resolved]
  - Peripheral swelling [Not Recovered/Not Resolved]
  - Inappropriate schedule of product administration [Unknown]
  - Tinnitus [Not Recovered/Not Resolved]
  - Rhinorrhoea [Unknown]
  - Contusion [Not Recovered/Not Resolved]
  - Upper-airway cough syndrome [Unknown]
  - Sinus headache [Not Recovered/Not Resolved]
  - Headache [Unknown]
  - Cataract [Unknown]
  - Hypersomnia [Not Recovered/Not Resolved]
  - Transfusion [Unknown]
  - Dizziness [Unknown]

NARRATIVE: CASE EVENT DATE: 201908
